FAERS Safety Report 22227859 (Version 1)
Quarter: 2023Q2

REPORT INFORMATION
  Report Type: Spontaneous
  Country: ES (occurrence: ES)
  Receive Date: 20230419
  Receipt Date: 20230419
  Transmission Date: 20230722
  Serious: Yes (Other)
  Sender: FDA-Public Use
  Company Number: ES-MLMSERVICE-20230329-4194126-1

PATIENT
  Age: 58 Year
  Sex: Male

DRUGS (8)
  1. PRAMIPEXOLE [Suspect]
     Active Substance: PRAMIPEXOLE
     Indication: Parkinson^s disease
     Dosage: 0.52 MILLIGRAM, ONCE A DAY
     Route: 065
  2. PRAMIPEXOLE [Suspect]
     Active Substance: PRAMIPEXOLE
     Indication: Impulse-control disorder
  3. QUETIAPINE [Suspect]
     Active Substance: QUETIAPINE
     Indication: Parkinson^s disease
     Dosage: UNK
     Route: 065
  4. QUETIAPINE [Suspect]
     Active Substance: QUETIAPINE
     Indication: Impulse-control disorder
  5. CARBIDOPA\LEVODOPA [Concomitant]
     Active Substance: CARBIDOPA\LEVODOPA
     Indication: Parkinson^s disease
     Dosage: UNK,(INTESTINAL GEL)
     Route: 065
  6. CARBIDOPA\LEVODOPA [Concomitant]
     Active Substance: CARBIDOPA\LEVODOPA
     Indication: Impulse-control disorder
  7. LEVODOPA [Concomitant]
     Active Substance: LEVODOPA
     Indication: Parkinson^s disease
     Dosage: 1200 MILLIGRAM, ONCE A DAY
     Route: 065
  8. LEVODOPA [Concomitant]
     Active Substance: LEVODOPA
     Indication: Impulse-control disorder
     Dosage: 1246 MILLIGRAM, ONCE A DAY
     Route: 065

REACTIONS (2)
  - Chorea [Unknown]
  - Drug ineffective [Unknown]
